FAERS Safety Report 8109881-1 (Version None)
Quarter: 2012Q1

REPORT INFORMATION
  Report Type: 
  Country: None (occurrence: None)
  Receive Date: 20120202
  Receipt Date: 20120124
  Transmission Date: 20120608
  Serious: Yes (Hospitalization, Other)
  Sender: FDA-Public Use
  Company Number: FI-ABBOTT-12P-055-0898218-00

PATIENT
  Age: 27 Year
  Sex: Female

DRUGS (2)
  1. COMBIVIR [Concomitant]
     Indication: HIV INFECTION
     Dates: start: 20110715, end: 20110727
  2. KALETRA [Suspect]
     Indication: HIV INFECTION
     Dates: start: 20110715, end: 20110727

REACTIONS (2)
  - UTERINE LEIOMYOMA [None]
  - CAESAREAN SECTION [None]
